FAERS Safety Report 13954933 (Version 1)
Quarter: 2017Q3

REPORT INFORMATION
  Report Type: Spontaneous
  Country: US (occurrence: US)
  Receive Date: 20170911
  Receipt Date: 20170911
  Transmission Date: 20171128
  Serious: No
  Sender: FDA-Public Use
  Company Number: US-BRAINTREE LABORATORIES-160601

PATIENT
  Sex: Female

DRUGS (1)
  1. SUPREP BOWEL PREP [Suspect]
     Active Substance: MAGNESIUM SULFATE\POTASSIUM SULFATE\SODIUM SULFATE
     Indication: COLONOSCOPY
     Dosage: {1.5 X 6OZ.BOTTLE
     Route: 048
     Dates: start: 20160807, end: 20160808

REACTIONS (3)
  - Headache [None]
  - Retching [None]
  - Nausea [None]

NARRATIVE: CASE EVENT DATE: 20160808
